FAERS Safety Report 6803466-2 (Version None)
Quarter: 2010Q2

REPORT INFORMATION
  Report Type: 
  Country: None (occurrence: None)
  Receive Date: 20100628
  Receipt Date: 20100624
  Transmission Date: 20101027
  Serious: Yes (Hospitalization)
  Sender: FDA-Public Use
  Company Number: DE-EISAI INC.-E2020-06927-SPO-DE

PATIENT
  Sex: Female
  Weight: 75 kg

DRUGS (1)
  1. ARICEPT [Suspect]
     Indication: DEMENTIA
     Route: 048
     Dates: end: 20100601

REACTIONS (3)
  - AGITATION [None]
  - PSYCHOTIC DISORDER [None]
  - VERTIGO [None]
